FAERS Safety Report 4355682-X (Version None)
Quarter: 2004Q2

REPORT INFORMATION
  Report Type: 
  Country: None (occurrence: None)
  Receive Date: 20040507
  Receipt Date: 20040420
  Transmission Date: 20050107
  Serious: Yes (Hospitalization)
  Sender: FDA-Public Use
  Company Number: ATO-04-0408

PATIENT
  Age: 47 Year
  Sex: Female
  Weight: 83 kg

DRUGS (4)
  1. TRISENOX [Suspect]
     Indication: METASTATIC MALIGNANT MELANOMA
     Dosage: 20 TO 29 MG (0.25 MG/KG, 5X/WK THEN 2X/WK), IVI
     Route: 042
     Dates: start: 20040301, end: 20040415
  2. ASCORBIC ACID [Suspect]
     Indication: METASTATIC MALIGNANT MELANOMA
     Dosage: 1000 MG (1000 MG, 5X/WK THEN 2X/WK), INTRAVENOUS
     Route: 042
     Dates: start: 20040301, end: 20040415
  3. TEMOZOLOMIDE [Suspect]
     Indication: MALIGNANT NEOPLASM PROGRESSION
     Dosage: 375 MG (200 MG/M2, 5 DAYS), ORAL
     Route: 048
     Dates: start: 20040308, end: 20040409
  4. TEMOZOLOMIDE [Suspect]
     Indication: METASTASES TO CENTRAL NERVOUS SYSTEM
     Dosage: 375 MG (200 MG/M2, 5 DAYS), ORAL
     Route: 048
     Dates: start: 20040308, end: 20040409

REACTIONS (7)
  - CONFUSIONAL STATE [None]
  - CONVULSION [None]
  - MALIGNANT NEOPLASM PROGRESSION [None]
  - METASTASES TO CENTRAL NERVOUS SYSTEM [None]
  - NAUSEA [None]
  - SPEECH DISORDER [None]
  - SWELLING [None]
